FAERS Safety Report 16018753 (Version 1)
Quarter: 2019Q1

REPORT INFORMATION
  Report Type: Spontaneous
  Country: DK (occurrence: DK)
  Receive Date: 20190228
  Receipt Date: 20190228
  Transmission Date: 20190418
  Serious: Yes (Hospitalization)
  Sender: FDA-Public Use
  Company Number: DK-MYLANLABS-2019M1018395

PATIENT
  Age: 72 Year
  Sex: Male
  Weight: 80 kg

DRUGS (9)
  1. CARVEDILOL TEVA [Concomitant]
     Active Substance: CARVEDILOL
     Indication: CARDIAC FAILURE
     Dosage: 25 MILLIGRAM, QD (STYRKE: 25 MG)
     Route: 048
     Dates: start: 20140301
  2. XARELTO [Concomitant]
     Active Substance: RIVAROXABAN
     Indication: THROMBOSIS PROPHYLAXIS
     Dosage: 20 MILLIGRAM, QD (STYRKE: 20 MG)
     Route: 048
     Dates: start: 20130725
  3. CISORDINOL                         /00876703/ [Concomitant]
     Active Substance: ZUCLOPENTHIXOL
     Indication: MENTAL DISORDER
     Dosage: 4 MILLIGRAM, QD (STYRKE: 2 MG)
     Route: 048
     Dates: start: 20130729
  4. UNIKALK BASIC [Concomitant]
     Indication: SUPPLEMENTATION THERAPY
     Dosage: 2 DOSAGE FORM, QD
     Route: 048
     Dates: start: 20170905
  5. KALEORID [Concomitant]
     Active Substance: POTASSIUM CHLORIDE
     Indication: MINERAL SUPPLEMENTATION
     Dosage: STYRKE: 750 MG (1500 MILLIGRAM, QD)
     Route: 048
     Dates: start: 20170703
  6. FURIX [Concomitant]
     Active Substance: FUROSEMIDE
     Indication: DIURETIC THERAPY
     Dosage: 80 MILLIGRAM, QD (STYRKE: 40 MG)
     Route: 048
     Dates: start: 20130704
  7. ODRIK 2 MG HARD CAPSULES [Suspect]
     Active Substance: TRANDOLAPRIL
     Indication: CARDIAC ARREST
     Dosage: 2 MILLIGRAM, QD (STYRKE: 2 MG)
     Route: 048
     Dates: start: 20150413, end: 20150815
  8. LATANOPROST. [Concomitant]
     Active Substance: LATANOPROST
     Indication: CATARACT
     Dosage: DOSIS: 1 DR?BE DAGLIGT I BEGGE ?JNE. STYRKE: 50 MIKROGRAM/ML
     Route: 047
     Dates: start: 20150609
  9. SPIRON                             /00006201/ [Concomitant]
     Active Substance: SPIRONOLACTONE
     Indication: CARDIAC FAILURE
     Dosage: 25 MILLIGRAM, QD (STYRKE: 25 MG)
     Route: 048
     Dates: start: 20150526

REACTIONS (5)
  - Angioedema [Unknown]
  - Dyspnoea [Unknown]
  - Urticaria [Unknown]
  - Swelling face [Unknown]
  - Cough [Unknown]

NARRATIVE: CASE EVENT DATE: 2018
